FAERS Safety Report 7129085-9 (Version None)
Quarter: 2010Q4

REPORT INFORMATION
  Report Type: 
  Country: None (occurrence: None)
  Receive Date: 20101130
  Receipt Date: 20101118
  Transmission Date: 20110411
  Serious: Yes (Other)
  Sender: FDA-Public Use
  Company Number: BR-US-EMD SERONO, INC.-7028744

PATIENT
  Sex: Female

DRUGS (4)
  1. REBIF [Suspect]
     Indication: RELAPSING-REMITTING MULTIPLE SCLEROSIS
     Dates: start: 20090201
  2. TEGRETOL [Concomitant]
  3. PARACETAMOL [Concomitant]
  4. BEMINAL PLUS [Concomitant]

REACTIONS (3)
  - DEPRESSION [None]
  - INFLUENZA [None]
  - PNEUMONIA [None]
